FAERS Safety Report 5690187-5 (Version None)
Quarter: 2008Q2

REPORT INFORMATION
  Report Type: 
  Country: None (occurrence: None)
  Receive Date: 20080401
  Receipt Date: 20080327
  Transmission Date: 20081010
  Serious: Yes (Hospitalization, Disabling)
  Sender: FDA-Public Use
  Company Number: FR-BRISTOL-MYERS SQUIBB COMPANY-14129191

PATIENT
  Age: 65 Year
  Sex: Male

DRUGS (8)
  1. COAPROVEL [Suspect]
     Indication: HEPATIC NEOPLASM MALIGNANT
     Dates: end: 20070818
  2. NEXAVAR [Suspect]
     Indication: HEPATIC NEOPLASM MALIGNANT
     Dates: start: 20070616, end: 20070823
  3. GLUCOPHAGE [Concomitant]
     Dates: end: 20070820
  4. INSULATARD [Concomitant]
     Dosage: 1 DOSAGE FORM = 0.3 TO 1 U/KG
  5. SECTRAL [Concomitant]
  6. PLAVIX [Concomitant]
  7. TAHOR [Concomitant]
  8. MOPRAL [Concomitant]

REACTIONS (3)
  - DIABETES MELLITUS [None]
  - DIARRHOEA [None]
  - HYPOKALAEMIA [None]
